FAERS Safety Report 5712338-6 (Version None)
Quarter: 2008Q2

REPORT INFORMATION
  Report Type: 
  Country: None (occurrence: None)
  Receive Date: 20080421
  Receipt Date: 20080421
  Transmission Date: 20081010
  Serious: Yes (Other)
  Sender: FDA-Public Use
  Company Number: None

PATIENT
  Sex: Female
  Weight: 4.3 kg

DRUGS (1)
  1. PREDNISOLONE [Suspect]
     Indication: LUNG DISORDER
     Dosage: PO
     Route: 048

REACTIONS (4)
  - HYPERTENSION [None]
  - LEFT VENTRICLE OUTFLOW TRACT OBSTRUCTION [None]
  - LEFT VENTRICULAR HYPERTROPHY [None]
  - MITRAL VALVE DISEASE [None]
